FAERS Safety Report 10535363 (Version 1)
Quarter: 2014Q4

REPORT INFORMATION
  Report Type: Spontaneous
  Country: CN (occurrence: CN)
  Receive Date: 20141022
  Receipt Date: 20141022
  Transmission Date: 20150529
  Serious: Yes (Hospitalization)
  Sender: FDA-Public Use
  Company Number: CN-GLAXOSMITHKLINE-CN2014GSK005436

PATIENT
  Age: 60 Year
  Sex: Male
  Weight: 80 kg

DRUGS (2)
  1. CHINESE TRADITIONAL MEDICATION [Concomitant]
  2. SERETIDE [Suspect]
     Active Substance: FLUTICASONE FUROATE\SALMETEROL XINAFOATE
     Indication: CHRONIC OBSTRUCTIVE PULMONARY DISEASE
     Dosage: 1 PUFF(S), BID
     Route: 055
     Dates: start: 201409

REACTIONS (5)
  - Chronic obstructive pulmonary disease [Not Recovered/Not Resolved]
  - Treatment noncompliance [Unknown]
  - Off label use [Not Recovered/Not Resolved]
  - Product quality issue [Unknown]
  - Disease recurrence [Unknown]

NARRATIVE: CASE EVENT DATE: 201409
